FAERS Safety Report 5481045-X (Version None)
Quarter: 2007Q4

REPORT INFORMATION
  Report Type: 
  Country: None (occurrence: None)
  Receive Date: 20071009
  Receipt Date: 20070927
  Transmission Date: 20080405
  Serious: Yes (Other)
  Sender: FDA-Public Use
  Company Number: DE-PFIZER INC-2007081523

PATIENT
  Age: 67 Year
  Sex: Male

DRUGS (16)
  1. LYRICA [Suspect]
     Dosage: DAILY DOSE:600MG
     Route: 048
  2. OXALIPLATIN [Suspect]
     Route: 042
     Dates: start: 20060814, end: 20061202
  3. FLUOROURACIL [Suspect]
     Route: 042
     Dates: start: 20060812, end: 20061202
  4. FOLINIC ACID [Suspect]
     Route: 042
     Dates: start: 20060814, end: 20061202
  5. NEBILET [Concomitant]
     Route: 048
  6. ALL OTHER THERAPEUTIC PRODUCTS [Concomitant]
     Route: 048
     Dates: start: 20010101
  7. SIMVASTATIN [Concomitant]
     Route: 048
     Dates: start: 20020101
  8. HERZASS ^RATIOPHARM^ [Concomitant]
     Route: 048
  9. OXYGESIC [Concomitant]
     Route: 048
  10. NEXIUM [Concomitant]
     Route: 048
  11. KATADOLON [Concomitant]
     Route: 048
  12. COAPROVEL [Concomitant]
     Route: 048
  13. ZOLPIDEM TARTRATE [Concomitant]
  14. TAVOR [Concomitant]
  15. NITROGLYCERIN [Concomitant]
     Route: 060
  16. METAMIZOLE [Concomitant]
     Route: 048

REACTIONS (1)
  - HAEMATOMA [None]
